FAERS Safety Report 5336146-3 (Version None)
Quarter: 2007Q2

REPORT INFORMATION
  Report Type: 
  Country: None (occurrence: None)
  Receive Date: 20070302
  Receipt Date: 20061220
  Transmission Date: 20071010
  Serious: No
  Sender: FDA-Public Use
  Company Number: PHEH2006US15436

PATIENT
  Age: 77 Year
  Sex: Male

DRUGS (2)
  1. ENABLEX [Suspect]
     Indication: HYPERTONIC BLADDER
     Dosage: 7.5 MG, QD; 15 MG, QD
     Dates: start: 20061101, end: 20061215
  2. ENABLEX [Suspect]
     Indication: HYPERTONIC BLADDER
     Dosage: 7.5 MG, QD; 15 MG, QD
     Dates: start: 20061216

REACTIONS (5)
  - DRY MOUTH [None]
  - DRY THROAT [None]
  - IRRITABILITY [None]
  - POLLAKIURIA [None]
  - SPUTUM ABNORMAL [None]
